FAERS Safety Report 4600534-0 (Version None)
Quarter: 2005Q1

REPORT INFORMATION
  Report Type: 
  Country: None (occurrence: None)
  Receive Date: 20050304
  Receipt Date: 20050301
  Transmission Date: 20050727
  Serious: Yes (Life-Threatening, Hospitalization)
  Sender: FDA-Public Use
  Company Number: 2005US000162

PATIENT
  Age: 59 Year
  Sex: Female

DRUGS (2)
  1. ADENOSCAN [Suspect]
     Indication: SCAN MYOCARDIAL PERFUSION
     Dosage: INTRAVENOUS
     Route: 042
     Dates: start: 20050201, end: 20050201
  2. OXYCONTIN [Concomitant]

REACTIONS (5)
  - ACUTE PULMONARY OEDEMA [None]
  - BODY TEMPERATURE INCREASED [None]
  - HAEMOPTYSIS [None]
  - INFUSION RELATED REACTION [None]
  - NERVOUS SYSTEM DISORDER [None]
